FAERS Safety Report 19129339 (Version 1)
Quarter: 2021Q2

REPORT INFORMATION
  Report Type: Spontaneous
  Country: US (occurrence: US)
  Receive Date: 20210413
  Receipt Date: 20210413
  Transmission Date: 20210717
  Serious: No
  Sender: FDA-Public Use
  Company Number: US-BIOGEN-2021BI00998702

PATIENT
  Sex: Female

DRUGS (1)
  1. TYSABRI [Suspect]
     Active Substance: NATALIZUMAB
     Indication: PRODUCT USED FOR UNKNOWN INDICATION
     Route: 065

REACTIONS (7)
  - Headache [Unknown]
  - Multiple allergies [Unknown]
  - Arthralgia [Unknown]
  - Aphonia [Unknown]
  - Discomfort [Unknown]
  - Infusion related reaction [Unknown]
  - Malaise [Unknown]
